APPROVED DRUG PRODUCT: MANGANESE CHLORIDE
Active Ingredient: MANGANESE CHLORIDE
Strength: EQ 0.1MG MANGANESE/ML
Dosage Form/Route: INJECTABLE;INJECTION
Application: A217583 | Product #001 | TE Code: AP
Applicant: FRESENIUS KABI USA LLC
Approved: Jul 7, 2025 | RLD: No | RS: No | Type: RX